FAERS Safety Report 10406091 (Version 5)
Quarter: 2014Q4

REPORT INFORMATION
  Report Type: Spontaneous
  Country: IE (occurrence: IE)
  Receive Date: 20140825
  Receipt Date: 20141031
  Transmission Date: 20150528
  Serious: Yes (Hospitalization)
  Sender: FDA-Public Use
  Company Number: IE-BAYER-2014-122530

PATIENT
  Age: 19 Year
  Sex: Female

DRUGS (3)
  1. CIPROXIN [Suspect]
     Active Substance: CIPROFLOXACIN
     Dosage: 400MG IN 250 NACL 0.9% IN LV250 INTERMARE, TID
     Route: 042
     Dates: start: 20140731
  2. SALINE SOLUTIONS [Concomitant]
     Dosage: 250 ML, BID
     Route: 042
     Dates: start: 20140731, end: 201408
  3. TAZOCIN [Concomitant]
     Active Substance: PIPERACILLIN SODIUM\TAZOBACTAM SODIUM
     Dosage: 4.5 G, TID
     Route: 042
     Dates: start: 20140731

REACTIONS (4)
  - Nasal obstruction [Recovered/Resolved]
  - Lip swelling [Recovered/Resolved]
  - Eyelid oedema [Recovered/Resolved]
  - Throat tightness [Recovered/Resolved]

NARRATIVE: CASE EVENT DATE: 201408
